FAERS Safety Report 4327485-3 (Version None)
Quarter: 2004Q1

REPORT INFORMATION
  Report Type: 
  Country: None (occurrence: None)
  Receive Date: 20040330
  Receipt Date: 20040330
  Transmission Date: 20041129
  Serious: No
  Sender: FDA-Public Use
  Company Number: None

PATIENT
  Age: 60 Year
  Sex: Male
  Weight: 107.9561 kg

DRUGS (1)
  1. ALLEGRA-D [Suspect]
     Indication: RESPIRATORY DISORDER
     Dosage: 3 PO X 1
     Route: 048

REACTIONS (1)
  - ATRIAL FIBRILLATION [None]
